FAERS Safety Report 20588863 (Version 1)
Quarter: 2022Q1

REPORT INFORMATION
  Report Type: Spontaneous
  Country: US (occurrence: None)
  Receive Date: 20220311
  Receipt Date: 20220311
  Transmission Date: 20220423
  Serious: Yes (unspecified)
  Sender: FDA-Public Use
  Company Number: None

PATIENT
  Age: 80 Year
  Sex: Male
  Weight: 100.24 kg

DRUGS (1)
  1. PRAMIPEXOLE [Suspect]
     Active Substance: PRAMIPEXOLE
     Indication: Restless legs syndrome
     Dates: start: 20220215, end: 20220310

REACTIONS (3)
  - Pruritus [None]
  - Hypersensitivity [None]
  - Product formulation issue [None]

NARRATIVE: CASE EVENT DATE: 20220215
